FAERS Safety Report 13374897 (Version 3)
Quarter: 2019Q3

REPORT INFORMATION
  Report Type: Report from Study
  Country: US (occurrence: US)
  Receive Date: 20170327
  Receipt Date: 20190906
  Transmission Date: 20191004
  Serious: Yes (Other)
  Sender: FDA-Public Use
  Company Number: US-ARIAD PHARMACEUTICALS, INC-2017US007964

PATIENT
  Sex: Male

DRUGS (1)
  1. PONATINIB [Suspect]
     Active Substance: PONATINIB
     Indication: CHRONIC MYELOID LEUKAEMIA
     Dosage: 45 MG, QD
     Route: 048
     Dates: start: 201703

REACTIONS (6)
  - Lower respiratory tract infection [Unknown]
  - Pain in extremity [Unknown]
  - Back pain [Unknown]
  - Appendicitis perforated [Unknown]
  - Rash [Unknown]
  - Chest pain [Unknown]
